FAERS Safety Report 7146575-3 (Version None)
Quarter: 2010Q4

REPORT INFORMATION
  Report Type: 
  Country: None (occurrence: None)
  Receive Date: 20101208
  Receipt Date: 20101129
  Transmission Date: 20110411
  Serious: No
  Sender: FDA-Public Use
  Company Number: GE-ABBOTT-10P-225-0683662-00

PATIENT
  Age: 35 Year
  Sex: Female

DRUGS (3)
  1. MERIDIA [Suspect]
     Indication: OVERWEIGHT
     Route: 048
  2. MERIDIA [Suspect]
     Indication: OBESITY
  3. MERIDIA [Suspect]
     Indication: BODY MASS INDEX

REACTIONS (6)
  - DEPRESSION [None]
  - GENERAL PHYSICAL HEALTH DETERIORATION [None]
  - HEADACHE [None]
  - MALAISE [None]
  - NAUSEA [None]
  - WEIGHT LOSS POOR [None]
